FAERS Safety Report 5085472-4 (Version None)
Quarter: 2006Q3

REPORT INFORMATION
  Report Type: 
  Country: None (occurrence: None)
  Receive Date: 20060817
  Receipt Date: 20060803
  Transmission Date: 20061208
  Serious: Yes (Hospitalization)
  Sender: FDA-Public Use
  Company Number: ABNYU-06-0402

PATIENT
  Age: 62 Year
  Sex: Female

DRUGS (1)
  1. ABRAXANE [Suspect]
     Indication: BREAST CANCER METASTATIC
     Dosage: 260 MG/M2 1 DOSE (260 MG/M2), INTRAVENOUS DRIP
     Route: 041

REACTIONS (5)
  - ALOPECIA [None]
  - HYPOAESTHESIA FACIAL [None]
  - NAUSEA [None]
  - NEUTROPENIA [None]
  - SEPSIS [None]
